FAERS Safety Report 15933654 (Version 2)
Quarter: 2019Q1

REPORT INFORMATION
  Report Type: Spontaneous
  Country: US (occurrence: US)
  Receive Date: 20190207
  Receipt Date: 20190228
  Transmission Date: 20190417
  Serious: Yes (Other)
  Sender: FDA-Public Use
  Company Number: US-009507513-1901USA010561

PATIENT
  Sex: Male
  Weight: 149.69 kg

DRUGS (10)
  1. OXYCODONE [Concomitant]
     Active Substance: OXYCODONE
     Dosage: 325 MILLIGRAM, QD
     Route: 048
     Dates: start: 20151115
  2. TESTOSTERONE CYPIONATE. [Concomitant]
     Active Substance: TESTOSTERONE CYPIONATE
     Dosage: 1 MILLILITER, QW (INJECTING MYSELF EVERY TWO WEEKS, 2000MG, 10 ML)
     Dates: end: 20170826
  3. PRILOSEC [Concomitant]
     Active Substance: OMEPRAZOLE MAGNESIUM
     Indication: DYSPEPSIA
     Dosage: 20 MILLIGRAM, EVERY OTHER DAY
     Route: 048
  4. DUTASTERIDE. [Concomitant]
     Active Substance: DUTASTERIDE
     Indication: PROSTATOMEGALY
     Dosage: 0.5 CAPSULE, ONCE A DAY
     Route: 048
     Dates: start: 201701
  5. TAMSULOSIN HYDROCHLORIDE. [Concomitant]
     Active Substance: TAMSULOSIN HYDROCHLORIDE
     Indication: PROSTATOMEGALY
     Dosage: 0.8 MILLIGRAM, HS (0.4MG CAPSULE, TWO BEFORE GOING TO BED)
     Route: 048
     Dates: start: 2014
  6. ZOCOR [Suspect]
     Active Substance: SIMVASTATIN
     Indication: BLOOD CHOLESTEROL INCREASED
     Dosage: 40MG TABLET SPLIT IN HALF, ONCE A DAY
     Route: 048
     Dates: start: 1997
  7. ZOLOFT [Suspect]
     Active Substance: SERTRALINE HYDROCHLORIDE
     Dosage: 50 MILLIGRAM
     Dates: start: 1997, end: 20170912
  8. PRAVASTATIN. [Concomitant]
     Active Substance: PRAVASTATIN
     Dosage: UNK
  9. HYDROCODONE [Concomitant]
     Active Substance: HYDROCODONE
     Indication: SURGERY
     Dosage: CAPSULE, ONE A DAY, EIGHT HOURS A DAY 5/325
     Route: 048
     Dates: start: 20140204
  10. TRAMADOL HYDROCHLORIDE. [Concomitant]
     Active Substance: TRAMADOL HYDROCHLORIDE

REACTIONS (9)
  - Hip arthroplasty [Unknown]
  - Sleep disorder [Recovering/Resolving]
  - Photorefractive keratectomy [Unknown]
  - Abnormal dreams [Recovering/Resolving]
  - Hip arthroplasty [Unknown]
  - Metabolic surgery [Unknown]
  - Nasal septal operation [Unknown]
  - Wrong technique in product usage process [Unknown]
  - Muscle spasms [Unknown]

NARRATIVE: CASE EVENT DATE: 1997
